FAERS Safety Report 7703450-0 (Version None)
Quarter: 2011Q3

REPORT INFORMATION
  Report Type: 
  Country: None (occurrence: None)
  Receive Date: 20110823
  Receipt Date: 20110811
  Transmission Date: 20111222
  Serious: Yes (Hospitalization)
  Sender: FDA-Public Use
  Company Number: RU-SANOFI-AVENTIS-2011SA044163

PATIENT
  Age: 73 Year
  Sex: Male
  Weight: 83 kg

DRUGS (8)
  1. AMLODIPINE [Concomitant]
  2. DRONEDARONE HCL [Suspect]
     Indication: ATRIAL FIBRILLATION
     Route: 048
     Dates: start: 20100928
  3. PANCREATIN TRIPLE STRENGTH CAP [Concomitant]
     Dates: start: 20110120
  4. MOXONIDINE [Concomitant]
     Dates: start: 20101214
  5. ASPIRIN [Concomitant]
  6. OMEPRAZOLE [Concomitant]
     Dates: start: 20100120
  7. DOMPERIDONE [Concomitant]
     Dates: start: 20110120
  8. METOPROLOL [Concomitant]
     Dates: start: 20101002

REACTIONS (1)
  - VARICOSE VEIN [None]
